FAERS Safety Report 25920963 (Version 1)
Quarter: 2025Q4

REPORT INFORMATION
  Report Type: Report from Study
  Country: US (occurrence: US)
  Receive Date: 20251014
  Receipt Date: 20251014
  Transmission Date: 20260117
  Serious: Yes (Life-Threatening, Hospitalization)
  Sender: MYLAN
  Company Number: US-MYLANLABS-2025M1086713

PATIENT
  Age: 74 Year
  Sex: Male
  Weight: 70.6 kg

DRUGS (23)
  1. MELPHALAN [Suspect]
     Active Substance: MELPHALAN
     Indication: Bone marrow conditioning regimen
     Dosage: 170 MILLIGRAM, QD (CHEMOTHERAPY, ONCE DAILY)
     Dates: start: 20250828
  2. METHOTREXATE [Suspect]
     Active Substance: METHOTREXATE
     Indication: Myelodysplastic syndrome
     Dosage: 8.5 UNKNOWN UNIT, QD (ONCE DAILY)
     Dates: start: 20250830
  3. METHOTREXATE [Suspect]
     Active Substance: METHOTREXATE
     Indication: Prophylaxis against graft versus host disease
  4. TACROLIMUS [Suspect]
     Active Substance: TACROLIMUS
     Indication: Myelodysplastic syndrome
     Dosage: 0.5 UNKNOWN UNIT, QD (ONCE DAILY)
     Dates: start: 20250826
  5. TACROLIMUS [Suspect]
     Active Substance: TACROLIMUS
     Indication: Prophylaxis against graft versus host disease
  6. FLUDARABINE [Suspect]
     Active Substance: FLUDARABINE PHOSPHATE
     Indication: Bone marrow conditioning regimen
     Dosage: 50 MILLIGRAM, QD (CHEMOTHERAPY ONCE DAILY)
     Dates: start: 20250824, end: 20250827
  7. MAGNESIUM SULFATE [Concomitant]
     Active Substance: MAGNESIUM SULFATE
     Dosage: UNK
  8. ONDANSETRON [Concomitant]
     Active Substance: ONDANSETRON
     Dosage: UNK
     Dates: start: 20250822, end: 20250825
  9. POTASSIUM CHLORIDE [Concomitant]
     Active Substance: POTASSIUM CHLORIDE
     Dosage: UNK
     Dates: start: 20250825, end: 20250826
  10. CIALIS [Concomitant]
     Active Substance: TADALAFIL
     Dosage: UNK
  11. METOLAZONE [Concomitant]
     Active Substance: METOLAZONE
     Dosage: UNK
     Dates: start: 20250906, end: 20250907
  12. ACYCLOVIR [Concomitant]
     Active Substance: ACYCLOVIR
     Dosage: UNK
  13. FILGRASTIM [Concomitant]
     Active Substance: FILGRASTIM
     Dosage: UNK
  14. LEVOFLOXACIN [Concomitant]
     Active Substance: LEVOFLOXACIN
     Dosage: UNK
  15. ETOMIDATE [Concomitant]
     Active Substance: ETOMIDATE
     Dosage: UNK
  16. ZOFRAN [Concomitant]
     Active Substance: ONDANSETRON HYDROCHLORIDE
     Dosage: UNK
     Dates: start: 20240822, end: 20250825
  17. ENOXAPARIN [Concomitant]
     Active Substance: ENOXAPARIN
     Dosage: UNK
  18. PROCHLORPERAZINE [Concomitant]
     Active Substance: PROCHLORPERAZINE
     Dosage: UNK
  19. ACETAMINOPHEN [Concomitant]
     Active Substance: ACETAMINOPHEN
     Dosage: UNK
  20. PANTOPRAZOLE [Concomitant]
     Active Substance: PANTOPRAZOLE
     Dosage: UNK
  21. TRIAMCINOLONE [Concomitant]
     Active Substance: TRIAMCINOLONE
     Dosage: UNK
  22. METRONIDAZOLE [Concomitant]
     Active Substance: METRONIDAZOLE
     Dosage: UNK
  23. CALCIUM GLUCONATE [Concomitant]
     Active Substance: CALCIUM GLUCONATE
     Dosage: UNK

REACTIONS (2)
  - Pericardial effusion [Recovered/Resolved]
  - Atrial fibrillation [Not Recovered/Not Resolved]

NARRATIVE: CASE EVENT DATE: 20250904
